FAERS Safety Report 11391762 (Version 3)
Quarter: 2015Q3

REPORT INFORMATION
  Report Type: Spontaneous
  Country: US (occurrence: US)
  Receive Date: 20150818
  Receipt Date: 20150925
  Transmission Date: 20151125
  Serious: No
  Sender: FDA-Public Use
  Company Number: US-PFIZER INC-2015272109

PATIENT
  Age: 76 Year
  Sex: Female

DRUGS (3)
  1. LYRICA [Suspect]
     Active Substance: PREGABALIN
     Dosage: 150 MG CAPSULE, 1X/DAY
     Dates: start: 20150808, end: 201508
  2. LYRICA [Suspect]
     Active Substance: PREGABALIN
     Dosage: 150 MG CAPSULE, 3X/DAY
  3. FLEXIPEN [Concomitant]
     Indication: TYPE 2 DIABETES MELLITUS
     Dosage: EVERY NIGHT AS AN INJECTION INTO HER STOMACH, DAILY

REACTIONS (3)
  - Neuralgia [Unknown]
  - Back pain [Unknown]
  - Pain in extremity [Unknown]
